FAERS Safety Report 9682554 (Version 2)
Quarter: 2014Q1

REPORT INFORMATION
  Report Type: Spontaneous
  Country: GB (occurrence: GB)
  Receive Date: 20131015
  Receipt Date: 20140129
  Transmission Date: 20141002
  Serious: Yes (Disabling, Other)
  Sender: FDA-Public Use
  Company Number: GB-DRREDDYS-GER/UKI/13/0034820

PATIENT
  Age: 28 Year
  Sex: Female
  Weight: 98.42 kg

DRUGS (4)
  1. SERTRALINE [Suspect]
     Indication: DEPRESSION
     Route: 048
     Dates: start: 201301, end: 2013
  2. SERTRALINE [Suspect]
     Indication: ANXIETY
  3. SERTRALINE [Suspect]
     Indication: PANIC ATTACK
  4. PROPANOL [Concomitant]
     Indication: PRODUCT USED FOR UNKNOWN INDICATION

REACTIONS (12)
  - Activities of daily living impaired [Unknown]
  - Energy increased [Recovered/Resolved]
  - Euphoric mood [Recovered/Resolved]
  - Anxiety [Recovered/Resolved]
  - Dissociation [Recovered/Resolved]
  - Mood swings [Recovered/Resolved]
  - Panic attack [Recovered/Resolved]
  - Self-injurious ideation [Recovered/Resolved]
  - Crying [Recovered/Resolved]
  - Elevated mood [Recovered/Resolved]
  - Psychiatric symptom [Recovered/Resolved]
  - Hypoaesthesia [Recovered/Resolved]
